FAERS Safety Report 24132977 (Version 1)
Quarter: 2024Q3

REPORT INFORMATION
  Report Type: Spontaneous
  Country: NO (occurrence: NO)
  Receive Date: 20240724
  Receipt Date: 20240724
  Transmission Date: 20241017
  Serious: Yes (Hospitalization)
  Sender: CURRAX PHARMACEUTICALS
  Company Number: None

PATIENT
  Age: 52 Year
  Sex: Male

DRUGS (6)
  1. BUPROPION HYDROCHLORIDE\NALTREXONE HYDROCHLORIDE [Suspect]
     Active Substance: BUPROPION HYDROCHLORIDE\NALTREXONE HYDROCHLORIDE
     Indication: Obesity
     Dosage: STRENGTH: 8/90 MG, 1 DF, 1 IN 1 D
     Route: 048
     Dates: start: 20240713, end: 20240713
  2. LIPITOR [Concomitant]
     Active Substance: ATORVASTATIN CALCIUM
     Indication: Product used for unknown indication
     Dosage: UNK
  3. OXYCODONE HYDROCHLORIDE [Concomitant]
     Active Substance: OXYCODONE HYDROCHLORIDE
     Indication: Pain
     Dosage: UP TO 6 TIMES A DAY (20 MG)
  4. WARFARIN [Concomitant]
     Active Substance: WARFARIN
     Indication: Heart valve replacement
     Dosage: UNK
  5. Amlodipine/valsartan/hydrochlorothiazide mylan [Concomitant]
     Indication: Product used for unknown indication
     Dosage: UNK
  6. PARACETAMOL NORFRI [Concomitant]
     Indication: Pain
     Dosage: 1000 MG, Q6H

REACTIONS (6)
  - Drug withdrawal syndrome [Recovered/Resolved]
  - Pyrexia [Recovered/Resolved]
  - Abdominal pain upper [Recovered/Resolved]
  - Hyperhidrosis [Recovered/Resolved]
  - Vomiting [Recovered/Resolved]
  - Nausea [Recovered/Resolved]

NARRATIVE: CASE EVENT DATE: 20240713
